FAERS Safety Report 6284061-3 (Version None)
Quarter: 2009Q3

REPORT INFORMATION
  Report Type: 
  Country: None (occurrence: None)
  Receive Date: 20090727
  Receipt Date: 20070122
  Transmission Date: 20100115
  Serious: Yes (Disabling, Other)
  Sender: FDA-Public Use
  Company Number: JP-NAPPMUNDI-MAG-2006-0000502

PATIENT

DRUGS (1)
  1. THEOPHYLLINE [Suspect]
     Indication: ASTHMA
     Dosage: 300 MG, DAILY
     Route: 048

REACTIONS (4)
  - CENTRAL NERVOUS SYSTEM LESION [None]
  - CEREBRAL ATROPHY [None]
  - ENCEPHALOPATHY [None]
  - STATUS EPILEPTICUS [None]
